FAERS Safety Report 7268267-2 (Version None)
Quarter: 2011Q1

REPORT INFORMATION
  Report Type: 
  Country: None (occurrence: None)
  Receive Date: 20110124
  Receipt Date: 20110111
  Transmission Date: 20110831
  Serious: Yes (Death)
  Sender: FDA-Public Use
  Company Number: GB-ACCORD-004061

PATIENT
  Age: 70 Year
  Sex: Male
  Weight: 45 kg

DRUGS (1)
  1. PACLITAXEL [Suspect]
     Indication: GASTRIC CANCER

REACTIONS (8)
  - GASTRIC CANCER [None]
  - DRUG INEFFECTIVE [None]
  - CHOLANGITIS [None]
  - DISEASE PROGRESSION [None]
  - RED BLOOD CELL COUNT DECREASED [None]
  - LARGE INTESTINAL STRICTURE [None]
  - JAUNDICE CHOLESTATIC [None]
  - HAEMOGLOBIN DECREASED [None]
